FAERS Safety Report 12491996 (Version 1)
Quarter: 2016Q2

REPORT INFORMATION
  Report Type: Spontaneous
  Country: US (occurrence: None)
  Receive Date: 20160622
  Receipt Date: 20160622
  Transmission Date: 20160815
  Serious: Yes (Other)
  Sender: FDA-Public Use
  Company Number: None

PATIENT
  Age: 70 Year
  Sex: Female
  Weight: 67.13 kg

DRUGS (8)
  1. PANTOPRAZOLE SODIUM DELAYED-RELEASE TABLETS 40 MG [Suspect]
     Active Substance: PANTOPRAZOLE SODIUM
     Indication: PRODUCT USED FOR UNKNOWN INDICATION
     Dosage: 40 MG, 90 TAQBLETS, 1/DAY, BY MOUTH
     Route: 048
     Dates: start: 20160601
  2. COQ10 [Concomitant]
     Active Substance: UBIDECARENONE
  3. VITAMIN D2 [Concomitant]
     Active Substance: ERGOCALCIFEROL
  4. MULTI VIT/CALCIUM+NIACIN [Concomitant]
  5. FISH OIL [Concomitant]
     Active Substance: FISH OIL
  6. LOSARTIN [Concomitant]
     Active Substance: LOSARTAN
  7. DULERA [Concomitant]
     Active Substance: FORMOTEROL FUMARATE DIHYDRATE\MOMETASONE FUROATE
  8. PROAIR HFA [Concomitant]
     Active Substance: ALBUTEROL SULFATE

REACTIONS (5)
  - Throat irritation [None]
  - Eructation [None]
  - Chest discomfort [None]
  - Drug ineffective [None]
  - Drug effect decreased [None]

NARRATIVE: CASE EVENT DATE: 20160601
